FAERS Safety Report 9927538 (Version 3)
Quarter: 2014Q1

REPORT INFORMATION
  Report Type: Spontaneous
  Country: JP (occurrence: JP)
  Receive Date: 20140227
  Receipt Date: 20140315
  Transmission Date: 20141002
  Serious: Yes (Death)
  Sender: FDA-Public Use
  Company Number: JP-ROCHE-1353058

PATIENT
  Age: 75 Year
  Sex: Male
  Weight: 54 kg

DRUGS (20)
  1. ACTEMRA [Suspect]
     Indication: CASTLEMAN^S DISEASE
     Route: 041
     Dates: start: 20050812, end: 20060731
  2. ACTEMRA [Suspect]
     Indication: CASTLEMAN^S DISEASE
     Route: 041
     Dates: start: 20060821, end: 20060821
  3. ACTEMRA [Suspect]
     Indication: CASTLEMAN^S DISEASE
     Route: 041
     Dates: start: 20060904
  4. PREDONINE [Concomitant]
     Indication: CASTLEMAN^S DISEASE
     Route: 048
     Dates: end: 20051011
  5. PREDONINE [Concomitant]
     Indication: CASTLEMAN^S DISEASE
     Route: 048
     Dates: start: 20051012, end: 20070401
  6. PREDONINE [Concomitant]
     Indication: CASTLEMAN^S DISEASE
     Route: 048
     Dates: start: 20080402
  7. ZANTAC [Concomitant]
     Indication: PROPHYLAXIS
     Route: 048
  8. ONEALFA [Concomitant]
     Indication: PROPHYLAXIS
     Route: 048
     Dates: end: 20070430
  9. BAYASPIRIN [Concomitant]
     Indication: PROPHYLAXIS
     Route: 048
     Dates: end: 20060118
  10. GLIMICRON [Concomitant]
     Indication: PROPHYLAXIS
     Route: 048
     Dates: end: 20071015
  11. LAXOBERON [Concomitant]
     Indication: PROPHYLAXIS
     Route: 048
     Dates: end: 20060118
  12. LAXOBERON [Concomitant]
     Indication: PROPHYLAXIS
     Route: 048
     Dates: start: 20070122
  13. PURSENNID [Concomitant]
     Indication: PROPHYLAXIS
     Route: 048
     Dates: end: 20060118
  14. PURSENNID [Concomitant]
     Indication: PROPHYLAXIS
     Route: 048
     Dates: start: 20070122
  15. ALFAROL [Concomitant]
     Indication: OSTEOPOROSIS
     Route: 048
     Dates: start: 200508
  16. AMARYL [Concomitant]
     Route: 048
     Dates: start: 20080609
  17. PLETAAL [Concomitant]
     Indication: ANGINA PECTORIS
     Route: 048
     Dates: start: 200505
  18. OLMETEC [Concomitant]
     Indication: HYPERTENSION
     Route: 048
     Dates: start: 200508
  19. LASIX [Concomitant]
     Indication: OEDEMA
     Route: 048
     Dates: start: 200508
  20. TAKEPRON [Concomitant]
     Indication: GASTROOESOPHAGEAL REFLUX DISEASE
     Route: 048
     Dates: start: 200505

REACTIONS (6)
  - Hepatic neoplasm [Fatal]
  - Pancreatic carcinoma [Fatal]
  - Cerebral haemorrhage [Fatal]
  - Metastases to peritoneum [Fatal]
  - Metastases to lymph nodes [Fatal]
  - Hyperuricaemia [Unknown]
